FAERS Safety Report 7226884-X (Version None)
Quarter: 2011Q1

REPORT INFORMATION
  Report Type: 
  Country: None (occurrence: None)
  Receive Date: 20110111
  Receipt Date: 20110111
  Transmission Date: 20110831
  Serious: Yes (Hospitalization)
  Sender: FDA-Public Use
  Company Number: None

PATIENT
  Sex: Male
  Weight: 92.0802 kg

DRUGS (5)
  1. RITUXAN [Suspect]
     Indication: LYMPHOMA
     Dosage: 817MG QWEEK X 2 IV DRIP THIS IS FIRST DOSE
     Route: 041
     Dates: start: 20101220
  2. TYLENOL-500 [Concomitant]
  3. BENADRYL [Concomitant]
  4. RITUXAN [Suspect]
  5. ZOFRAN [Concomitant]

REACTIONS (2)
  - BLOOD PRESSURE INCREASED [None]
  - CHILLS [None]
